FAERS Safety Report 18202572 (Version 1)
Quarter: 2020Q3

REPORT INFORMATION
  Report Type: Spontaneous
  Country: US (occurrence: US)
  Receive Date: 20200827
  Receipt Date: 20200827
  Transmission Date: 20201103
  Serious: No
  Sender: FDA-Public Use
  Company Number: US-009507513-2008USA012307

PATIENT
  Age: 77 Year

DRUGS (1)
  1. KEYTRUDA [Suspect]
     Active Substance: PEMBROLIZUMAB
     Indication: SARCOMA METASTATIC
     Dosage: 200 MILLIGRAM, EVERY THREE WEEKS
     Route: 042

REACTIONS (1)
  - Off label use [Unknown]
